FAERS Safety Report 14673637 (Version 1)
Quarter: 2018Q1

REPORT INFORMATION
  Report Type: Spontaneous
  Country: CA (occurrence: CA)
  Receive Date: 20180323
  Receipt Date: 20180323
  Transmission Date: 20180509
  Serious: Yes (Other)
  Sender: FDA-Public Use
  Company Number: CA-BAXTER-2018BAX009183

PATIENT
  Sex: Female

DRUGS (4)
  1. CELLCEPT [Suspect]
     Active Substance: MYCOPHENOLATE MOFETIL\MYCOPHENOLATE MOFETIL HYDROCHLORIDE
     Indication: DERMATOMYOSITIS
     Route: 065
  2. PLAQUENIL [Suspect]
     Active Substance: HYDROXYCHLOROQUINE SULFATE
     Indication: DERMATOMYOSITIS
     Route: 065
  3. PROCYTOX (CYCLOPHOSPHAMIDE) 2000MG/VIAL [Suspect]
     Active Substance: CYCLOPHOSPHAMIDE
     Indication: DERMATOMYOSITIS
     Route: 065
  4. RITUXAN [Suspect]
     Active Substance: RITUXIMAB
     Indication: DERMATOMYOSITIS
     Route: 065

REACTIONS (1)
  - Treatment failure [Unknown]
